FAERS Safety Report 17769949 (Version 2)
Quarter: 2024Q2

REPORT INFORMATION
  Report Type: Spontaneous
  Country: US (occurrence: US)
  Receive Date: 20200512
  Receipt Date: 20240621
  Transmission Date: 20240716
  Serious: Yes (Death)
  Sender: FDA-Public Use
  Company Number: US-PFIZER INC-2020178581

PATIENT
  Age: 61 Year

DRUGS (1)
  1. THROMBOSTAT [Suspect]
     Active Substance: THROMBIN
     Dosage: UNK

REACTIONS (2)
  - Incorrect route of product administration [Fatal]
  - Anaphylactic shock [Fatal]
